FAERS Safety Report 22846154 (Version 7)
Quarter: 2024Q4

REPORT INFORMATION
  Report Type: Spontaneous
  Country: US (occurrence: US)
  Receive Date: 20230821
  Receipt Date: 20241105
  Transmission Date: 20250115
  Serious: Yes (Hospitalization, Other)
  Sender: ALEXION PHARMACEUTICALS
  Company Number: US-ALXN-A202310639

PATIENT

DRUGS (4)
  1. SOLIRIS [Suspect]
     Active Substance: ECULIZUMAB
     Indication: Neuromyelitis optica spectrum disorder
     Dosage: UNK
     Route: 065
  2. LYRICA [Suspect]
     Active Substance: PREGABALIN
     Indication: Pain
     Dosage: 300 MG, UNK
     Route: 065
  3. LYRICA [Suspect]
     Active Substance: PREGABALIN
     Dosage: 150 MG, UNK
     Route: 065
  4. GABAPENTIN [Suspect]
     Active Substance: GABAPENTIN
     Indication: Pain
     Dosage: 900 MG, UNK
     Route: 065

REACTIONS (22)
  - Cellulitis orbital [Unknown]
  - Neuromyelitis optica spectrum disorder [Unknown]
  - Retinitis [Unknown]
  - Device issue [Unknown]
  - Hypoaesthesia [Unknown]
  - Peripheral swelling [Unknown]
  - Muscle spasms [Unknown]
  - Somnolence [Unknown]
  - Swelling face [Unknown]
  - Musculoskeletal stiffness [Unknown]
  - Illness [Not Recovered/Not Resolved]
  - Sciatica [Unknown]
  - Sneezing [Unknown]
  - Malaise [Unknown]
  - Pain [Unknown]
  - Back pain [Unknown]
  - Headache [Unknown]
  - Cough [Unknown]
  - Nasopharyngitis [Unknown]
  - Nausea [Unknown]
  - Rhinorrhoea [Unknown]
  - Dyspnoea [Unknown]
